FAERS Safety Report 24000060 (Version 1)
Quarter: 2024Q2

REPORT INFORMATION
  Report Type: Spontaneous
  Country: US (occurrence: US)
  Receive Date: 20240621
  Receipt Date: 20240621
  Transmission Date: 20240715
  Serious: Yes (Other)
  Sender: FDA-Public Use
  Company Number: US-ELI_LILLY_AND_COMPANY-US202406007344

PATIENT
  Age: 63 Year
  Sex: Male

DRUGS (3)
  1. HUMULIN 70/30 [Suspect]
     Active Substance: INSULIN HUMAN
     Indication: Diabetes mellitus
     Dosage: UNK UNK, UNKNOWN
     Route: 065
  2. INSULIN LISPRO [Suspect]
     Active Substance: INSULIN LISPRO
     Indication: Blood glucose abnormal
     Dosage: 20 U, QID
     Route: 065
  3. LANTUS [Concomitant]
     Active Substance: INSULIN GLARGINE
     Indication: Blood glucose abnormal
     Dosage: UNK, DAILY (AT NIGHT)

REACTIONS (8)
  - Head and neck cancer [Unknown]
  - Tonsil cancer [Unknown]
  - Papilloma viral infection [Unknown]
  - Blood glucose abnormal [Unknown]
  - Cataract [Unknown]
  - Oral mucosal blistering [Unknown]
  - Dysphagia [Unknown]
  - Accidental underdose [Unknown]
